FAERS Safety Report 21191765 (Version 2)
Quarter: 2023Q2

REPORT INFORMATION
  Report Type: Other
  Country: JP (occurrence: JP)
  Receive Date: 20220809
  Receipt Date: 20230404
  Transmission Date: 20230721
  Serious: Yes (Other)
  Sender: FDA-Public Use
  Company Number: JP-CHUGAI-2021027914

PATIENT
  Age: 76 Year
  Sex: Male

DRUGS (6)
  1. ATEZOLIZUMAB [Suspect]
     Active Substance: ATEZOLIZUMAB
     Indication: Hepatocellular carcinoma
     Dosage: SINGLE
     Route: 041
     Dates: start: 20211008
  2. ATEZOLIZUMAB [Suspect]
     Active Substance: ATEZOLIZUMAB
     Dosage: SINGLE
     Route: 041
     Dates: end: 20220909
  3. BEVACIZUMAB [Suspect]
     Active Substance: BEVACIZUMAB
     Indication: Hepatocellular carcinoma
     Dosage: SINGLE
     Route: 041
     Dates: start: 20211008
  4. BEVACIZUMAB [Suspect]
     Active Substance: BEVACIZUMAB
     Dosage: SINGLE
     Route: 041
     Dates: start: 20211008, end: 20220909
  5. BETAMETHASONE [Concomitant]
     Active Substance: BETAMETHASONE
     Dosage: UNK
     Route: 065
  6. HYDROCORTISONE [Concomitant]
     Active Substance: HYDROCORTISONE
     Dosage: 10 MILLIGRAM
     Route: 048

REACTIONS (9)
  - Neutropenia [Recovered/Resolved]
  - Cortisol decreased [Recovered/Resolved]
  - Drug eruption [Recovered/Resolved]
  - Blood corticotrophin decreased [Recovered/Resolved]
  - Neutrophil count decreased [Recovered/Resolved]
  - Folliculitis [Recovered/Resolved]
  - Dermatitis [Unknown]
  - Hypertension [Recovered/Resolved]
  - Hypersensitivity [Recovered/Resolved]

NARRATIVE: CASE EVENT DATE: 20211025
